FAERS Safety Report 9242004 (Version 2)
Quarter: 2013Q2

REPORT INFORMATION
  Report Type: Spontaneous
  Country: US (occurrence: US)
  Receive Date: 20130419
  Receipt Date: 20130510
  Transmission Date: 20140414
  Serious: No
  Sender: FDA-Public Use
  Company Number: US-PFIZER INC-2013117707

PATIENT
  Age: 61 Year
  Sex: Female
  Weight: 68 kg

DRUGS (5)
  1. ESTRING [Suspect]
     Indication: MENOPAUSAL SYMPTOMS
     Dosage: UNK
     Route: 067
     Dates: start: 20130319
  2. ESTRING [Suspect]
     Indication: ATROPHIC VULVOVAGINITIS
  3. TOPAMAX [Concomitant]
     Dosage: 150 MG, UNK
  4. TRILEPTAL [Concomitant]
     Dosage: 600 MG, UNK
  5. VERAPAMIL [Concomitant]
     Dosage: 300 MG, UNK

REACTIONS (4)
  - Product quality issue [Recovered/Resolved]
  - Vulvovaginal pain [Recovered/Resolved]
  - Vulvovaginal discomfort [Recovered/Resolved]
  - Vulvovaginal discomfort [Unknown]
